FAERS Safety Report 20410857 (Version 1)
Quarter: 2022Q1

REPORT INFORMATION
  Report Type: Report from Study
  Country: IT (occurrence: IT)
  Receive Date: 20220201
  Receipt Date: 20220201
  Transmission Date: 20220423
  Serious: Yes (Other)
  Sender: FDA-Public Use
  Company Number: IT-PFIZER INC-202200114674

PATIENT
  Age: 20 Month
  Sex: Male

DRUGS (4)
  1. METHOTREXATE SODIUM [Suspect]
     Active Substance: METHOTREXATE SODIUM
     Indication: Medulloblastoma
     Dosage: 8 G/M2 AT WEEK 0 AND 1, HIGH DOSE
  2. VINCRISTINE SULFATE [Suspect]
     Active Substance: VINCRISTINE SULFATE
     Indication: Medulloblastoma
     Dosage: 1.4 MG/M2, CYCLIC AT WEEK 0 AND 1
  3. ETOPOSIDE [Suspect]
     Active Substance: ETOPOSIDE
     Indication: Medulloblastoma
     Dosage: 2.4 G/M2 AT WEEK 4, HIGH DOSE
  4. THIOTEPA [Concomitant]
     Active Substance: THIOTEPA
     Indication: Medulloblastoma
     Dosage: 300 MG/M2, CYCLIC (2 COURSES)

REACTIONS (1)
  - Hypertension [Unknown]
